FAERS Safety Report 5500200-3 (Version None)
Quarter: 2007Q4

REPORT INFORMATION
  Report Type: 
  Country: None (occurrence: None)
  Receive Date: 20071025
  Receipt Date: 20071016
  Transmission Date: 20080405
  Serious: No
  Sender: FDA-Public Use
  Company Number: TPA2007A02124

PATIENT
  Age: 43 Year
  Sex: Male
  Weight: 77.1115 kg

DRUGS (5)
  1. ROZEREM [Suspect]
     Indication: INSOMNIA
     Dosage: 8 MG, QHS, PER ORAL
     Route: 048
     Dates: start: 20050101
  2. ROZEREM [Suspect]
     Indication: INSOMNIA
     Dosage: 8 MG, QHS, PER ORAL
     Route: 048
     Dates: start: 20071015
  3. AMBIEN [Suspect]
     Indication: INSOMNIA
     Dates: start: 20050101, end: 20060101
  4. AMBIEN CR [Suspect]
     Indication: INSOMNIA
     Dates: start: 20060101, end: 20060101
  5. LUNESTA [Concomitant]

REACTIONS (6)
  - DRUG INEFFECTIVE [None]
  - HANGOVER [None]
  - INITIAL INSOMNIA [None]
  - INSOMNIA [None]
  - MIDDLE INSOMNIA [None]
  - REBOUND EFFECT [None]
